FAERS Safety Report 8064313-7 (Version None)
Quarter: 2012Q1

REPORT INFORMATION
  Report Type: 
  Country: None (occurrence: None)
  Receive Date: 20120123
  Receipt Date: 20120112
  Transmission Date: 20120608
  Serious: Yes (Hospitalization)
  Sender: FDA-Public Use
  Company Number: IE-MEDIMMUNE-MEDI-0014579

PATIENT
  Sex: Female
  Weight: 6.9 kg

DRUGS (3)
  1. ALBUTEROL SULFATE AUTOHALER [Concomitant]
  2. BECLOMETHASONE DIPROPIONATE [Concomitant]
  3. SYNAGIS [Suspect]
     Route: 030
     Dates: start: 20101116, end: 20101116

REACTIONS (1)
  - BRONCHIOLITIS [None]
